FAERS Safety Report 8527760 (Version 3)
Quarter: 2012Q4

REPORT INFORMATION
  Report Type: Report from Study
  Country: ES (occurrence: ES)
  Receive Date: 20120424
  Receipt Date: 20121203
  Transmission Date: 20130627
  Serious: Yes (Hospitalization)
  Sender: FDA-Public Use
  Company Number: ES-GLAXOSMITHKLINE-Z0015155A

PATIENT
  Age: 40 Year
  Sex: Female
  Weight: 43.5 kg

DRUGS (6)
  1. CYCLOPHOSPHAMIDE [Suspect]
     Indication: CHRONIC LYMPHOCYTIC LEUKAEMIA
     Route: 042
     Dates: start: 20111121
  2. PIPERACILINA [Concomitant]
     Indication: INFECTION PROPHYLAXIS
     Dosage: 4G Three times per day
     Route: 042
     Dates: start: 20120416, end: 20120421
  3. TAZOBACTAM [Concomitant]
     Indication: INFECTION PROPHYLAXIS
     Dosage: 500MG Three times per day
     Route: 042
     Dates: start: 20120416, end: 20120421
  4. LEVOFLOXACIN [Concomitant]
     Indication: INFECTION PROPHYLAXIS
     Dosage: 500MG Per day
     Route: 048
     Dates: start: 20120422, end: 20120426
  5. OFATUMUMAB [Suspect]
     Indication: CHRONIC LYMPHOCYTIC LEUKAEMIA
     Route: 042
     Dates: start: 20111121
  6. FLUDARABINE [Suspect]
     Indication: CHRONIC LYMPHOCYTIC LEUKAEMIA
     Route: 042
     Dates: start: 20111121

REACTIONS (1)
  - Febrile neutropenia [Recovered/Resolved]
